FAERS Safety Report 9167704 (Version 2)
Quarter: 2013Q2

REPORT INFORMATION
  Report Type: Spontaneous
  Country: CN (occurrence: CN)
  Receive Date: 20130318
  Receipt Date: 20130422
  Transmission Date: 20140414
  Serious: Yes (Other)
  Sender: FDA-Public Use
  Company Number: PHHY2013CN025440

PATIENT
  Sex: Female

DRUGS (1)
  1. MIACALCIC [Suspect]
     Dosage: UNK UKN, UNK
     Route: 045

REACTIONS (2)
  - Angle closure glaucoma [Unknown]
  - Blindness transient [Unknown]
